FAERS Safety Report 19671082 (Version 2)
Quarter: 2021Q4

REPORT INFORMATION
  Report Type: Report from Study
  Country: US (occurrence: US)
  Receive Date: 20210806
  Receipt Date: 20211022
  Transmission Date: 20220303
  Serious: Yes (Hospitalization, Other)
  Sender: FDA-Public Use
  Company Number: US-TEVA-2021-US-1939373

PATIENT
  Age: 70 Year
  Sex: Female
  Weight: 79.91 kg

DRUGS (8)
  1. CARBOPLATIN [Suspect]
     Active Substance: CARBOPLATIN
     Indication: Ovarian cancer
     Dosage: 5 AUC
     Route: 042
     Dates: start: 20210630, end: 20210714
  2. PLX-2853 [Suspect]
     Active Substance: PLX-2853
     Indication: Ovarian cancer
     Dosage: 80 MILLIGRAM DAILY;
     Route: 048
     Dates: start: 20210630, end: 20210714
  3. VITAMIN D3 [Concomitant]
     Active Substance: CHOLECALCIFEROL
     Route: 065
     Dates: start: 201812
  4. VITAMINS [Concomitant]
     Active Substance: VITAMINS
     Route: 065
  5. MAGOX [Concomitant]
     Route: 065
     Dates: start: 201904
  6. TYLENOL EXTRA STRENGTH [Concomitant]
     Active Substance: ACETAMINOPHEN
     Route: 065
     Dates: start: 201808
  7. COMPAZINE [Concomitant]
     Active Substance: PROCHLORPERAZINE MALEATE
     Route: 065
     Dates: start: 20210707, end: 20210707
  8. DECADRON [Concomitant]
     Active Substance: DEXAMETHASONE
     Route: 065
     Dates: start: 20210707, end: 20210707

REACTIONS (3)
  - Gastric haemorrhage [Not Recovered/Not Resolved]
  - Thrombocytopenia [Unknown]
  - Fall [Unknown]

NARRATIVE: CASE EVENT DATE: 20210101
